FAERS Safety Report 13603382 (Version 1)
Quarter: 2017Q2

REPORT INFORMATION
  Report Type: Spontaneous
  Country: US (occurrence: US)
  Receive Date: 20170601
  Receipt Date: 20170601
  Transmission Date: 20170912
  Serious: No
  Sender: FDA-Public Use
  Company Number: US-OTSUKA-2016_018970

PATIENT
  Age: 45 Year
  Sex: Male

DRUGS (4)
  1. SAMSCA [Suspect]
     Indication: BLOOD SODIUM ABNORMAL
  2. SAMSCA [Suspect]
     Indication: FLUID IMBALANCE
     Dosage: 15 MG, BIW (EVERY 72 HOURS)
     Route: 048
     Dates: start: 201607
  3. LISINOPRIL [Concomitant]
     Indication: PRODUCT USED FOR UNKNOWN INDICATION
     Dosage: UNK
     Route: 065
  4. HYDROCODONE/ACETAMINOPHEN [Concomitant]
     Active Substance: ACETAMINOPHEN\HYDROCODONE
     Indication: FRACTURE PAIN
     Dosage: UNK
     Route: 065

REACTIONS (3)
  - Vomiting [Unknown]
  - Inappropriate schedule of drug administration [Unknown]
  - Off label use [Unknown]

NARRATIVE: CASE EVENT DATE: 201607
